FAERS Safety Report 5246931-4 (Version None)
Quarter: 2007Q1

REPORT INFORMATION
  Report Type: 
  Country: None (occurrence: None)
  Receive Date: 20070226
  Receipt Date: 20070221
  Transmission Date: 20070707
  Serious: Yes (Hospitalization)
  Sender: FDA-Public Use
  Company Number: US-BOEHRINGER INGELHEIM PHARMACEUTICALS, INC.-2007-BP-01854BP

PATIENT
  Sex: Male

DRUGS (2)
  1. SPIRIVA [Suspect]
     Indication: PULMONARY FIBROSIS
     Route: 055
     Dates: start: 20061101
  2. SPIRIVA [Suspect]
     Indication: EMPHYSEMA

REACTIONS (1)
  - PNEUMONIA [None]
